FAERS Safety Report 6566868-8 (Version None)
Quarter: 2010Q1

REPORT INFORMATION
  Report Type: 
  Country: None (occurrence: None)
  Receive Date: 20100202
  Receipt Date: 20100125
  Transmission Date: 20100710
  Serious: Yes (Other)
  Sender: FDA-Public Use
  Company Number: B0629423A

PATIENT
  Age: 59 Year
  Sex: Female

DRUGS (2)
  1. VALTREX [Suspect]
     Indication: HERPES ZOSTER
     Dosage: 500MG SIX TIMES PER DAY
     Route: 048
  2. ZOVIRAX [Suspect]
     Indication: HERPES ZOSTER
     Dosage: 250MG PER DAY
     Route: 042

REACTIONS (5)
  - CRYING [None]
  - ENCEPHALOPATHY [None]
  - HEADACHE [None]
  - INCOHERENT [None]
  - LOGORRHOEA [None]
